FAERS Safety Report 7364920-0 (Version None)
Quarter: 2011Q1

REPORT INFORMATION
  Report Type: 
  Country: None (occurrence: None)
  Receive Date: 20110316
  Receipt Date: 20110316
  Transmission Date: 20110831
  Serious: Yes (Life-Threatening)
  Sender: FDA-Public Use
  Company Number: None

PATIENT
  Age: 57 Year
  Sex: Female
  Weight: 49.8957 kg

DRUGS (2)
  1. CLINDAMYCIN [Suspect]
     Indication: TOOTH ABSCESS
     Dosage: 4 PILLS A DAY FOR 10 DAYS
  2. VANCOMYCIN [Concomitant]

REACTIONS (2)
  - DIARRHOEA [None]
  - CLOSTRIDIAL INFECTION [None]
